FAERS Safety Report 6616071-8 (Version None)
Quarter: 2010Q1

REPORT INFORMATION
  Report Type: 
  Country: None (occurrence: None)
  Receive Date: 20100305
  Receipt Date: 20100222
  Transmission Date: 20100710
  Serious: Yes (Other)
  Sender: FDA-Public Use
  Company Number: PHHY2010MX00820

PATIENT
  Sex: Female

DRUGS (6)
  1. CO-DIOVAN [Suspect]
     Indication: HYPERTENSION
     Dosage: 1 TABLET (160/25 MG) DAILY
     Route: 048
     Dates: start: 20091002
  2. EXFORGE [Suspect]
     Dosage: 1 TABLET (160/10MG) PER DAY
     Route: 048
     Dates: start: 20091001, end: 20091115
  3. EXFORGE [Suspect]
     Dosage: 1 TABLET (160/10MG) PER DAY
     Route: 048
     Dates: start: 20091229
  4. ANTISTAX [Concomitant]
     Indication: VENOUS INSUFFICIENCY
     Dosage: UNK
     Dates: start: 20091212
  5. BONIVA [Concomitant]
     Route: 065
  6. MULTI-VITAMIN [Concomitant]
     Route: 065

REACTIONS (10)
  - ANXIETY [None]
  - ASTHENIA [None]
  - BLOOD PRESSURE INCREASED [None]
  - CARDIOMEGALY [None]
  - CHILLS [None]
  - DISCOMFORT [None]
  - FEELING HOT [None]
  - HYPERTRIGLYCERIDAEMIA [None]
  - MUSCULAR WEAKNESS [None]
  - TREATMENT NONCOMPLIANCE [None]
